FAERS Safety Report 20831072 (Version 2)
Quarter: 2022Q2

REPORT INFORMATION
  Report Type: Spontaneous
  Country: US (occurrence: US)
  Receive Date: 20220515
  Receipt Date: 20220520
  Transmission Date: 20220721
  Serious: Yes (Hospitalization, Other)
  Sender: FDA-Public Use
  Company Number: US-Blueprint Medicines Corporation-SP-US-2022-001423

PATIENT
  Age: 66 Year
  Sex: Male

DRUGS (1)
  1. AYVAKIT [Suspect]
     Active Substance: AVAPRITINIB
     Indication: Gastrointestinal stromal tumour
     Route: 048
     Dates: start: 20220413

REACTIONS (4)
  - Haemoglobin abnormal [Not Recovered/Not Resolved]
  - Haematocrit abnormal [Not Recovered/Not Resolved]
  - Neoplasm malignant [Not Recovered/Not Resolved]
  - Dialysis [Not Recovered/Not Resolved]

NARRATIVE: CASE EVENT DATE: 20220424
